FAERS Safety Report 16212640 (Version 3)
Quarter: 2020Q1

REPORT INFORMATION
  Report Type: Spontaneous
  Country: JP (occurrence: JP)
  Receive Date: 20190418
  Receipt Date: 20200305
  Transmission Date: 20200409
  Serious: Yes (Other)
  Sender: FDA-Public Use
  Company Number: JP-JNJFOC-20190425045

PATIENT
  Age: 75 Year
  Sex: Female
  Weight: 51.9 kg

DRUGS (6)
  1. SIMPONI [Suspect]
     Active Substance: GOLIMUMAB
     Indication: RHEUMATOID ARTHRITIS
     Route: 058
     Dates: start: 20180601, end: 20181228
  2. RITUXAN [Suspect]
     Active Substance: RITUXIMAB
     Indication: RHEUMATOID ARTHRITIS
     Route: 065
     Dates: start: 20180406, end: 20181228
  3. FOLIAMIN [Concomitant]
     Active Substance: FOLIC ACID
     Route: 065
  4. PREDONINE [Suspect]
     Active Substance: PREDNISOLONE
     Indication: RHEUMATOID ARTHRITIS
     Route: 048
     Dates: start: 20180224
  5. EDIROL [Concomitant]
     Active Substance: ELDECALCITOL
     Route: 048
  6. CELECOX [Concomitant]
     Active Substance: CELECOXIB
     Route: 048

REACTIONS (1)
  - Tuberculous pleurisy [Recovered/Resolved]

NARRATIVE: CASE EVENT DATE: 20190118
